FAERS Safety Report 7503434-1 (Version None)
Quarter: 2011Q2

REPORT INFORMATION
  Report Type: 
  Country: None (occurrence: None)
  Receive Date: 20110524
  Receipt Date: 20110524
  Transmission Date: 20111010
  Serious: Yes (Hospitalization)
  Sender: FDA-Public Use
  Company Number: None

PATIENT
  Age: 50 Year
  Sex: Male

DRUGS (16)
  1. EPOGEN [Concomitant]
  2. SENNA-MINT WAF [Concomitant]
  3. LEVOXYL [Concomitant]
  4. TESTOSTERONE [Concomitant]
  5. AMIODARONE HCL [Concomitant]
  6. VITE [Concomitant]
  7. WARFARIN SODIUM [Suspect]
     Dosage: 5MG DAILY PO
     Route: 048
  8. PRAVASTATIN [Concomitant]
  9. CIALIS [Concomitant]
  10. LOPRESSOR [Concomitant]
  11. COREG [Concomitant]
  12. TRAZODONE HCL [Concomitant]
  13. INSULIN [Concomitant]
  14. CALCIUM CARBONATE [Concomitant]
  15. COLACE [Concomitant]
  16. RENAGEL [Concomitant]

REACTIONS (2)
  - INTERNATIONAL NORMALISED RATIO INCREASED [None]
  - EPISTAXIS [None]
